FAERS Safety Report 21476998 (Version 2)
Quarter: 2023Q1

REPORT INFORMATION
  Report Type: Report from Study
  Country: CA (occurrence: CA)
  Receive Date: 20221019
  Receipt Date: 20230312
  Transmission Date: 20230418
  Serious: Yes (Other)
  Sender: FDA-Public Use
  Company Number: CA-NOVARTISPH-NVSC2022CA232291

PATIENT
  Age: 47 Year
  Sex: Female

DRUGS (2)
  1. HYRIMOZ [Suspect]
     Active Substance: ADALIMUMAB-ADAZ
     Indication: Crohn^s disease
     Dosage: 40 MG, QW
     Route: 058
     Dates: start: 20211028
  2. HYRIMOZ [Suspect]
     Active Substance: ADALIMUMAB-ADAZ
     Dosage: UNK
     Route: 065
     Dates: start: 20221008

REACTIONS (7)
  - Crohn^s disease [Unknown]
  - Abdominal pain [Unknown]
  - Abdominal discomfort [Unknown]
  - Arthralgia [Unknown]
  - Anal fissure [Unknown]
  - Rash [Unknown]
  - Inappropriate schedule of product administration [Unknown]
